FAERS Safety Report 4887872-1 (Version None)
Quarter: 2006Q1

REPORT INFORMATION
  Report Type: 
  Country: None (occurrence: None)
  Receive Date: 20060123
  Receipt Date: 20050406
  Transmission Date: 20060701
  Serious: Yes (Hospitalization)
  Sender: FDA-Public Use
  Company Number: US-MERCK-0504USA01032

PATIENT
  Age: 43 Year
  Sex: Male
  Weight: 85 kg

DRUGS (20)
  1. AMOXICILLIN [Concomitant]
     Route: 065
  2. PROTONIX [Concomitant]
     Route: 065
  3. [THERAPY UNSPECIFIED] [Concomitant]
     Route: 065
  4. HYDROXYCHLOROQUINE SULFATE [Concomitant]
     Route: 065
  5. VIOXX [Suspect]
     Indication: RHEUMATOID ARTHRITIS
     Route: 048
     Dates: start: 20010101, end: 20040901
  6. HYDROCODONE BITARTRATE + ACETAMINOPHEN [Concomitant]
     Route: 065
  7. NEXIUM [Concomitant]
     Route: 065
  8. VICODIN [Concomitant]
     Route: 065
  9. ZANTAC [Concomitant]
     Route: 065
  10. RESTORIL [Concomitant]
     Route: 065
  11. PENICILLIN (UNSPECIFIED) [Concomitant]
     Route: 065
  12. TYLENOL W/ CODEINE [Concomitant]
     Route: 065
  13. ELAVIL [Concomitant]
     Route: 065
  14. PREDNISONE [Concomitant]
     Route: 065
  15. AUGMENTIN '125' [Concomitant]
     Route: 065
  16. NAPROSYN [Concomitant]
     Route: 065
  17. PREVACID [Concomitant]
     Route: 065
  18. IMITREX [Concomitant]
     Route: 065
  19. ULTRAM [Concomitant]
     Route: 065
  20. BUTORPHANOL [Concomitant]
     Route: 065

REACTIONS (6)
  - ACUTE MYOCARDIAL INFARCTION [None]
  - CHEST PAIN [None]
  - GASTROINTESTINAL HAEMORRHAGE [None]
  - OESOPHAGEAL DISORDER [None]
  - OESOPHAGITIS [None]
  - RECTAL HAEMORRHAGE [None]
